FAERS Safety Report 23159451 (Version 1)
Quarter: 2023Q4

REPORT INFORMATION
  Report Type: Spontaneous
  Country: CN (occurrence: CN)
  Receive Date: 20231108
  Receipt Date: 20231108
  Transmission Date: 20240109
  Serious: Yes (Hospitalization, Other)
  Sender: FDA-Public Use
  Company Number: CN-BRISTOL-MYERS SQUIBB COMPANY-2023-159144

PATIENT
  Age: 45 Year
  Sex: Female
  Weight: 41.4 kg

DRUGS (5)
  1. OPDIVO [Suspect]
     Active Substance: NIVOLUMAB
     Indication: Gastric cancer
     Dosage: DRUG USE-TIMES: 1?DRUG USE-DAYS: 1
     Route: 041
     Dates: start: 20231002, end: 20231002
  2. OPDIVO [Suspect]
     Active Substance: NIVOLUMAB
     Dosage: DRUG USE-TIMES: 1?DRUG USE-DAYS: 1
     Route: 041
     Dates: start: 20231002, end: 20231002
  3. PACLITAXEL [Suspect]
     Active Substance: PACLITAXEL
     Indication: Gastric cancer
     Route: 041
     Dates: start: 20231002, end: 20231002
  4. CYRAMZA [Suspect]
     Active Substance: RAMUCIRUMAB
     Indication: Gastric cancer
     Route: 041
     Dates: start: 20231002, end: 20231002
  5. SODIUM CHLORIDE [Concomitant]
     Active Substance: SODIUM CHLORIDE
     Indication: Gastric cancer
     Dosage: 100ML IVGTT ONCE
     Route: 041
     Dates: start: 20231002, end: 20231002

REACTIONS (2)
  - Off label use [Unknown]
  - Myelosuppression [Unknown]

NARRATIVE: CASE EVENT DATE: 20231018
